FAERS Safety Report 5848510-4 (Version None)
Quarter: 2008Q3

REPORT INFORMATION
  Report Type: 
  Country: None (occurrence: None)
  Receive Date: 20080818
  Receipt Date: 20080523
  Transmission Date: 20090109
  Serious: No
  Sender: FDA-Public Use
  Company Number: US-BAYER-200812311BCC

PATIENT
  Age: 85 Year
  Sex: Female
  Weight: 86 kg

DRUGS (5)
  1. ALEVE (CAPLET) [Suspect]
     Indication: BONE PAIN
     Dosage: AS USED: 440 + 440 MG  UNIT DOSE: 220 MG
     Route: 048
  2. PAXIL [Concomitant]
  3. NORTRIPTYLINE HCL [Concomitant]
  4. KLONOPIN [Concomitant]
  5. THYROID MEDICATION [Concomitant]

REACTIONS (1)
  - BONE PAIN [None]
